FAERS Safety Report 24300865 (Version 1)
Quarter: 2024Q3

REPORT INFORMATION
  Report Type: Spontaneous
  Country: BR (occurrence: BR)
  Receive Date: 20240910
  Receipt Date: 20240910
  Transmission Date: 20241016
  Serious: Yes (Hospitalization)
  Sender: ACCORD
  Company Number: BR-MLMSERVICE-20240828-PI174343-00059-1

PATIENT
  Age: 41 Year
  Sex: Female

DRUGS (6)
  1. HYDROXYCHLOROQUINE [Suspect]
     Active Substance: HYDROXYCHLOROQUINE
     Indication: Systemic lupus erythematosus
  2. AZATHIOPRINE [Suspect]
     Active Substance: AZATHIOPRINE
     Indication: Immunosuppressant drug therapy
  3. PREDNISONE [Suspect]
     Active Substance: PREDNISONE
     Indication: Immunosuppressant drug therapy
  4. PREDNISONE [Suspect]
     Active Substance: PREDNISONE
     Indication: Systemic lupus erythematosus
  5. HYDROXYCHLOROQUINE [Suspect]
     Active Substance: HYDROXYCHLOROQUINE
     Indication: Immunosuppressant drug therapy
  6. AZATHIOPRINE [Suspect]
     Active Substance: AZATHIOPRINE
     Indication: Systemic lupus erythematosus

REACTIONS (8)
  - Intervertebral discitis [Recovered/Resolved]
  - Osteonecrosis [Recovered/Resolved]
  - Spinal compression fracture [Recovered/Resolved]
  - Kyphosis [Recovered/Resolved]
  - Paracoccidioides infection [Recovered/Resolved]
  - Extradural abscess [Recovered/Resolved]
  - Weight decreased [Unknown]
  - Spinal cord compression [Recovered/Resolved]
